FAERS Safety Report 8399980-1 (Version None)
Quarter: 2012Q2

REPORT INFORMATION
  Report Type: 
  Country: None (occurrence: None)
  Receive Date: 20120531
  Receipt Date: 20120516
  Transmission Date: 20120825
  Serious: No
  Sender: FDA-Public Use
  Company Number: US-ASTRAZENECA-2012SE31807

PATIENT
  Age: 69 Year
  Sex: Male

DRUGS (2)
  1. OMEPRAZOLE [Suspect]
     Route: 048
  2. PLAVIX [Interacting]
     Route: 065

REACTIONS (1)
  - INHIBITORY DRUG INTERACTION [None]
